FAERS Safety Report 7805242-0 (Version None)
Quarter: 2011Q4

REPORT INFORMATION
  Report Type: 
  Country: None (occurrence: None)
  Receive Date: 20111010
  Receipt Date: 20110927
  Transmission Date: 20120403
  Serious: Yes (Other)
  Sender: FDA-Public Use
  Company Number: US-ELI_LILLY_AND_COMPANY-US201109008483

PATIENT
  Age: 38 Year
  Sex: Female

DRUGS (2)
  1. TEGRETOL [Concomitant]
     Dosage: UNK
     Dates: start: 20110926
  2. ZYPREXA ZYDIS [Suspect]
     Indication: ANXIETY
     Dosage: 10 MG, UNK
     Dates: start: 20110926

REACTIONS (2)
  - OFF LABEL USE [None]
  - AGITATION [None]
